FAERS Safety Report 5598318-2 (Version None)
Quarter: 2008Q1

REPORT INFORMATION
  Report Type: 
  Country: None (occurrence: None)
  Receive Date: 20080122
  Receipt Date: 20080116
  Transmission Date: 20080703
  Serious: Yes (Death)
  Sender: FDA-Public Use
  Company Number: A0704647A

PATIENT
  Age: 88 Year
  Sex: Female

DRUGS (7)
  1. SERETIDE [Suspect]
     Indication: CHRONIC OBSTRUCTIVE PULMONARY DISEASE
     Dates: start: 20070701, end: 20071229
  2. SOTALOL HCL [Concomitant]
     Dates: start: 20070101, end: 20071229
  3. ASPIRIN [Concomitant]
     Dates: start: 20070101, end: 20071229
  4. DIGOXIN [Concomitant]
     Dates: start: 20070101, end: 20071229
  5. INSULIN [Concomitant]
     Dates: start: 20070101, end: 20071229
  6. LOSARTAN [Concomitant]
     Dates: start: 19970101, end: 20071229
  7. BAMIFIX [Concomitant]
     Dates: start: 20070101, end: 20071229

REACTIONS (1)
  - DEATH [None]
